FAERS Safety Report 18499556 (Version 2)
Quarter: 2020Q4

REPORT INFORMATION
  Report Type: Spontaneous
  Country: RO (occurrence: RO)
  Receive Date: 20201113
  Receipt Date: 20201120
  Transmission Date: 20210114
  Serious: Yes (Death)
  Sender: FDA-Public Use
  Company Number: RO-ROCHE-2711762

PATIENT
  Age: 48 Year
  Sex: Female

DRUGS (5)
  1. ROACTEMRA [Suspect]
     Active Substance: TOCILIZUMAB
     Indication: COVID-19
     Dosage: DOSE 4 162 MG VIALS
     Route: 042
     Dates: start: 20201018
  2. METHYLPREDNISOLONE. [Concomitant]
     Active Substance: METHYLPREDNISOLONE
  3. PLASMA [Concomitant]
     Active Substance: HUMAN PLASMA
  4. REMDESIVIR. [Concomitant]
     Active Substance: REMDESIVIR
  5. ROACTEMRA [Suspect]
     Active Substance: TOCILIZUMAB
     Dosage: 18 80 MG BOTTLES
     Route: 042
     Dates: start: 20201019

REACTIONS (6)
  - Intentional product use issue [Unknown]
  - Lymphopenia [Unknown]
  - C-reactive protein increased [Unknown]
  - Death [Fatal]
  - Off label use [Unknown]
  - Blood lactate dehydrogenase increased [Unknown]

NARRATIVE: CASE EVENT DATE: 20201018
